FAERS Safety Report 14425771 (Version 13)
Quarter: 2021Q3

REPORT INFORMATION
  Report Type: Spontaneous
  Country: ES (occurrence: ES)
  Receive Date: 20180123
  Receipt Date: 20210904
  Transmission Date: 20211014
  Serious: Yes (Hospitalization, Other)
  Sender: FDA-Public Use
  Company Number: PHHY2017ES199283

PATIENT
  Age: 87 Year
  Sex: Male
  Weight: 87 kg

DRUGS (88)
  1. NEOTIGASON [Suspect]
     Active Substance: ACITRETIN
     Indication: ERYTHRODERMIC PSORIASIS
     Dosage: 50 MG, QD
     Route: 065
     Dates: start: 20170728, end: 20170728
  2. LISALGIL [Suspect]
     Active Substance: METAMIZOLE SODIUM
     Indication: PRODUCT USED FOR UNKNOWN INDICATION
     Dosage: 1 DF, Q8H (1200 MG QD)
     Route: 042
     Dates: start: 201708
  3. AUXINA A+E [Concomitant]
     Active Substance: RETINOL\TOCOPHEROL
     Dosage: 1 DF,UNK
     Route: 048
     Dates: start: 201704, end: 20170726
  4. AUXINA A+E [Concomitant]
     Active Substance: RETINOL\TOCOPHEROL
     Dosage: 1 DF, 1X/DAY
     Route: 048
     Dates: start: 20170401, end: 20170726
  5. BILAXTEN [Concomitant]
     Active Substance: BILASTINE
     Dosage: 40 MG, QD
     Route: 048
     Dates: start: 20170726, end: 20170726
  6. ENALAPRIL [Concomitant]
     Active Substance: ENALAPRIL
     Dosage: 5 MG,QD
     Route: 065
  7. PARACETAMOL [Concomitant]
     Active Substance: ACETAMINOPHEN
     Dosage: 650 MG,Q12H
     Route: 065
  8. SIMVASTATIN. [Concomitant]
     Active Substance: SIMVASTATIN
     Dosage: 20 MG,QD
     Route: 065
  9. BETAMETHASONE. [Concomitant]
     Active Substance: BETAMETHASONE
     Dosage: 2 DF, QD
     Route: 065
  10. BRETARIS GENUAIR [Concomitant]
     Active Substance: ACLIDINIUM BROMIDE
     Dosage: 1 DF,Q12H
     Route: 055
  11. BRETARIS GENUAIR [Concomitant]
     Active Substance: ACLIDINIUM BROMIDE
     Dosage: UNK
     Route: 055
  12. DIPROGENTA [Concomitant]
     Active Substance: BETAMETHASONE DIPROPIONATE\GENTAMICIN SULFATE
     Indication: PRODUCT USED FOR UNKNOWN INDICATION
     Dosage: 1 DF, 1X/DAY
     Route: 061
  13. ENALAPRIL AGEN [Concomitant]
     Indication: PRODUCT USED FOR UNKNOWN INDICATION
     Dosage: 5 MG, QD
     Route: 065
  14. ACICLOVIR [Suspect]
     Active Substance: ACYCLOVIR
     Dosage: 45 MG,UNK
     Route: 058
  15. ALLOPURINOL. [Suspect]
     Active Substance: ALLOPURINOL
     Indication: HYPERURICAEMIA
     Dosage: 100 MG, QD
     Route: 065
  16. CEFTRIAXONE. [Suspect]
     Active Substance: CEFTRIAXONE
     Indication: PRODUCT USED FOR UNKNOWN INDICATION
     Dosage: 500 MG, QD
     Route: 030
     Dates: start: 20170801, end: 20170812
  17. NEOTIGASON [Suspect]
     Active Substance: ACITRETIN
     Dosage: 25 MG, QD
     Route: 065
     Dates: start: 20170728, end: 20170728
  18. STELARA [Suspect]
     Active Substance: USTEKINUMAB
     Indication: ERYTHRODERMIC PSORIASIS
     Dosage: 50 MG, CAPSULE
     Route: 065
     Dates: start: 20170728
  19. JUNIPER OIL [Concomitant]
     Active Substance: HERBALS\JUNIPERUS COMMUNIS WHOLE
     Dosage: 1 ?G/L, QD
     Route: 065
  20. OMNIC OCAS [Concomitant]
     Active Substance: TAMSULOSIN HYDROCHLORIDE
     Indication: PRODUCT USED FOR UNKNOWN INDICATION
     Dosage: 1 ?G/L, QD
     Route: 065
  21. BILAXTEN [Concomitant]
     Active Substance: BILASTINE
     Dosage: 20 MG, QD
     Route: 065
     Dates: start: 20170727
  22. BILAXTEN [Concomitant]
     Active Substance: BILASTINE
     Dosage: 40 MG, QD
     Route: 048
  23. SIMVASTATIN. [Concomitant]
     Active Substance: SIMVASTATIN
     Indication: PRODUCT USED FOR UNKNOWN INDICATION
     Dosage: 20 MG, 1X/DAY (24 HOURS)
     Route: 065
  24. DIPROGENTA [Concomitant]
     Active Substance: BETAMETHASONE DIPROPIONATE\GENTAMICIN SULFATE
     Dosage: 1 DF, 2X/DAY
     Route: 061
  25. DIPROGENTA [Concomitant]
     Active Substance: BETAMETHASONE DIPROPIONATE\GENTAMICIN SULFATE
     Dosage: UNK UNK,Q12H
     Route: 061
  26. AZITHROMYCIN ANHYDROUS. [Concomitant]
     Active Substance: AZITHROMYCIN ANHYDROUS
     Indication: PRODUCT USED FOR UNKNOWN INDICATION
     Dosage: UNK
     Route: 065
  27. CALCIPOTRIOL/BETAMETHASONE SANDOZ [Concomitant]
     Indication: PRODUCT USED FOR UNKNOWN INDICATION
     Dosage: 2 DF
     Route: 065
  28. ACICLOVIR [Suspect]
     Active Substance: ACYCLOVIR
     Indication: ERYTHRODERMIC PSORIASIS
     Dosage: 1200 MG, QD
     Route: 042
     Dates: start: 20170810
  29. ALLOPURINOL. [Suspect]
     Active Substance: ALLOPURINOL
     Dosage: UNK
     Route: 065
     Dates: start: 20110101
  30. NOLOTIL (METAMIZOLE MAGNESIUM) [Suspect]
     Active Substance: METAMIZOLE MAGNESIUM
     Indication: PRODUCT USED FOR UNKNOWN INDICATION
     Dosage: UNK, 1X/DAY (DOSAGE FORM: UNSPECIFIED)
     Route: 042
     Dates: start: 20170801
  31. JUNIPER OIL [Concomitant]
     Active Substance: HERBALS\JUNIPERUS COMMUNIS WHOLE
     Dosage: 1 DF,QD
     Route: 065
  32. OMNIC OCAS [Concomitant]
     Active Substance: TAMSULOSIN HYDROCHLORIDE
     Dosage: 1 DF, QD
     Route: 065
  33. BILAXTEN [Concomitant]
     Active Substance: BILASTINE
     Indication: PRODUCT USED FOR UNKNOWN INDICATION
     Dosage: 20 MG,QD
     Route: 048
     Dates: start: 20170726, end: 20170726
  34. ZYLORIC [Concomitant]
     Active Substance: ALLOPURINOL
     Indication: PRODUCT USED FOR UNKNOWN INDICATION
     Dosage: 100 MG, 1X/DAY
     Route: 065
  35. LORATADINE. [Concomitant]
     Active Substance: LORATADINE
     Indication: PRODUCT USED FOR UNKNOWN INDICATION
     Dosage: 10 MG,QD
     Route: 048
     Dates: start: 20170726
  36. LORATADINE. [Concomitant]
     Active Substance: LORATADINE
     Dosage: 10 MG,QD
     Route: 048
     Dates: start: 20170726
  37. BRETARIS GENUAIR [Concomitant]
     Active Substance: ACLIDINIUM BROMIDE
     Indication: PRODUCT USED FOR UNKNOWN INDICATION
     Dosage: 1 ?G/L, Q12H
     Route: 055
  38. MONOLITUM [Concomitant]
     Active Substance: LANSOPRAZOLE
     Indication: PRODUCT USED FOR UNKNOWN INDICATION
     Dosage: 30 MG,QD
     Route: 065
     Dates: start: 20170401
  39. FLUCONAZOLE. [Suspect]
     Active Substance: FLUCONAZOLE
     Indication: PRODUCT USED FOR UNKNOWN INDICATION
     Dosage: 200 MG,QD
     Route: 042
     Dates: start: 20170810
  40. ACICLOVIR [Suspect]
     Active Substance: ACYCLOVIR
     Dosage: 1200 MG, QD
     Route: 042
     Dates: start: 20170810
  41. PARACETAMOL [Concomitant]
     Active Substance: ACETAMINOPHEN
     Indication: PRODUCT USED FOR UNKNOWN INDICATION
     Dosage: 650 MG, 2X/DAY (EACH 12H)
     Route: 065
  42. BRETARIS GENUAIR [Concomitant]
     Active Substance: ACLIDINIUM BROMIDE
     Dosage: UNK, QD
     Route: 055
  43. EUCERIN [Concomitant]
     Active Substance: ENSULIZOLE\EUCERIN\OCTINOXATE\OCTISALATE\TITANIUM DIOXIDE\ZINC OXIDE
     Dosage: UNK UNK, 2X/DAY
     Route: 065
  44. CALCIPOTRIOL/BETAMETHASONE SANDOZ [Concomitant]
     Dosage: 2 DF, 2X/DAY (12 HOURS)
     Route: 065
  45. ENALAPRIL AGEN [Concomitant]
     Dosage: 5 MG, 1X/DAY
     Route: 065
  46. LISALGIL [Suspect]
     Active Substance: METAMIZOLE SODIUM
     Dosage: IN 1 DAY
     Route: 042
     Dates: start: 20170801
  47. LISALGIL [Suspect]
     Active Substance: METAMIZOLE SODIUM
     Dosage: 1 DF, 3X/DAY (EVERY 8 HOURS)  (1200 MG QD)
     Route: 042
     Dates: start: 201708
  48. ACITRETIN. [Concomitant]
     Active Substance: ACITRETIN
     Indication: PRODUCT USED FOR UNKNOWN INDICATION
     Dosage: 25 MG,QD
     Route: 065
     Dates: start: 20170728
  49. SALMETEROL [Concomitant]
     Active Substance: SALMETEROL
     Dosage: UNK UNK,Q12H
     Route: 055
  50. SALMETEROL [Concomitant]
     Active Substance: SALMETEROL
     Dosage: 1 DF, 2X/DAY (1 INHALATION, 2X/DAY (12 HOURS)
     Route: 055
  51. BETAMETHASONE. [Concomitant]
     Active Substance: BETAMETHASONE
     Indication: PRODUCT USED FOR UNKNOWN INDICATION
     Dosage: 1 ?G/L, Q12H
     Route: 065
     Dates: start: 201704
  52. BRETARIS GENUAIR [Concomitant]
     Active Substance: ACLIDINIUM BROMIDE
     Dosage: 1 DF, Q12H
     Route: 055
  53. DIPROGENTA [Concomitant]
     Active Substance: BETAMETHASONE DIPROPIONATE\GENTAMICIN SULFATE
     Dosage: 2 DF, 2X/DAY (Q12H)
     Route: 061
  54. SPIRONOLACTONE. [Concomitant]
     Active Substance: SPIRONOLACTONE
     Indication: PRODUCT USED FOR UNKNOWN INDICATION
     Dosage: 25 MG,QD
     Route: 065
     Dates: start: 20170802
  55. ACICLOVIR [Suspect]
     Active Substance: ACYCLOVIR
     Dosage: 45 MG, QD
     Route: 042
     Dates: start: 20170810
  56. ACICLOVIR [Suspect]
     Active Substance: ACYCLOVIR
     Dosage: 400 MG, Q8H
     Route: 042
     Dates: start: 20170810
  57. STELARA [Suspect]
     Active Substance: USTEKINUMAB
     Dosage: 45 MG, BID
     Route: 058
     Dates: start: 20170803, end: 20170803
  58. STELARA [Suspect]
     Active Substance: USTEKINUMAB
     Dosage: 45 MG, QD
     Route: 058
     Dates: start: 20170803, end: 20170803
  59. JUNIPER OIL [Concomitant]
     Active Substance: HERBALS\JUNIPERUS COMMUNIS WHOLE
     Indication: PRODUCT USED FOR UNKNOWN INDICATION
     Dosage: UNK, QD (BATHROOMS WITH JUNIPER OIL ONCE A DAY FOR 20 MINUTES)
     Route: 065
  60. OMNIC OCAS [Concomitant]
     Active Substance: TAMSULOSIN HYDROCHLORIDE
     Dosage: 1 DF, 1X/DAY (24 HOURS)
     Route: 065
  61. ENALAPRIL [Concomitant]
     Active Substance: ENALAPRIL
     Dosage: 5 MG,QD
     Route: 065
  62. ALDACTONE [Concomitant]
     Active Substance: SPIRONOLACTONE
     Indication: PRODUCT USED FOR UNKNOWN INDICATION
     Dosage: 25 MG, 1X/DAY
     Route: 065
     Dates: end: 20170802
  63. DACORTIN [Concomitant]
     Active Substance: PREDNISONE
     Dosage: 5 MG,QD
     Route: 065
  64. BRETARIS GENUAIR [Concomitant]
     Active Substance: ACLIDINIUM BROMIDE
     Dosage: UNK
     Route: 055
  65. DIPROGENTA [Concomitant]
     Active Substance: BETAMETHASONE DIPROPIONATE\GENTAMICIN SULFATE
     Dosage: UNK UNK,Q12H
     Route: 061
  66. EUCERIN [Concomitant]
     Active Substance: ENSULIZOLE\EUCERIN\OCTINOXATE\OCTISALATE\TITANIUM DIOXIDE\ZINC OXIDE
     Indication: PRODUCT USED FOR UNKNOWN INDICATION
     Dosage: UNK
     Route: 065
  67. CALCIPOTRIOL/BETAMETHASONE SANDOZ [Concomitant]
     Dosage: 4 DF, QD
     Route: 065
  68. LISALGIL [Suspect]
     Active Substance: METAMIZOLE SODIUM
     Dosage: 3.0 DOSAGE FORM (1 DOSAGE FORM),1 IN 8HOUR
     Route: 042
     Dates: start: 20170801
  69. ENALAPRIL [Concomitant]
     Active Substance: ENALAPRIL
     Indication: PRODUCT USED FOR UNKNOWN INDICATION
     Dosage: 5 MG, 1X/DAY
     Route: 065
  70. SIMVASTATIN. [Concomitant]
     Active Substance: SIMVASTATIN
     Dosage: 20 MG,QD
     Route: 065
  71. SALMETEROL [Concomitant]
     Active Substance: SALMETEROL
     Dosage: UNK UNK,Q12H
     Route: 055
  72. BETAMETHASONE. [Concomitant]
     Active Substance: BETAMETHASONE
     Dosage: 1 DF,Q12H
     Route: 065
     Dates: start: 201704
  73. DIPROGENTA [Concomitant]
     Active Substance: BETAMETHASONE DIPROPIONATE\GENTAMICIN SULFATE
     Dosage: 1 DF, 2X/DAY
     Route: 061
  74. DIPROGENTA [Concomitant]
     Active Substance: BETAMETHASONE DIPROPIONATE\GENTAMICIN SULFATE
     Dosage: 1 DF,Q12H
     Route: 061
  75. DIPROGENTA [Concomitant]
     Active Substance: BETAMETHASONE DIPROPIONATE\GENTAMICIN SULFATE
     Dosage: UNK UNK,Q12H
     Route: 061
  76. DIPROGENTA [Concomitant]
     Active Substance: BETAMETHASONE DIPROPIONATE\GENTAMICIN SULFATE
     Dosage: 1 DF, 2X/DAY  (EVERY 12 HOURS)
     Route: 061
  77. AZITHROMYCIN ANHYDROUS. [Concomitant]
     Active Substance: AZITHROMYCIN ANHYDROUS
     Dosage: UNK
     Route: 065
     Dates: start: 20170812
  78. ENALAPRIL AGEN [Concomitant]
     Dosage: 5 MG, QD
     Route: 065
  79. METAMIZOLE SODIUM [Suspect]
     Active Substance: METAMIZOLE SODIUM
     Indication: PRODUCT USED FOR UNKNOWN INDICATION
     Dosage: 1 ?G/L, QD
     Route: 042
     Dates: start: 20170801
  80. STELARA [Suspect]
     Active Substance: USTEKINUMAB
     Indication: PSORIASIS
     Dosage: 25 MG, QD, CAPSULE
     Route: 065
     Dates: start: 20170728, end: 20170728
  81. AUXINA A+E [Concomitant]
     Active Substance: RETINOL\TOCOPHEROL
     Indication: PRODUCT USED FOR UNKNOWN INDICATION
     Dosage: 1 ?G/L, QD
     Route: 048
     Dates: start: 201704, end: 20170726
  82. SEGURIL [Concomitant]
     Active Substance: FUROSEMIDE
     Indication: PRODUCT USED FOR UNKNOWN INDICATION
     Dosage: 60 MG,QD
     Route: 065
     Dates: start: 20170802, end: 20170802
  83. ZYLORIC [Concomitant]
     Active Substance: ALLOPURINOL
     Dosage: 100 MG,QD
     Route: 065
  84. SALMETEROL [Concomitant]
     Active Substance: SALMETEROL
     Indication: PRODUCT USED FOR UNKNOWN INDICATION
     Dosage: 1 ?G/L, Q12H (SEREVENT ACCUHALER)
     Route: 055
  85. BETAMETHASONE. [Concomitant]
     Active Substance: BETAMETHASONE
     Dosage: 4 DF, QD
     Route: 065
  86. DACORTIN [Concomitant]
     Active Substance: PREDNISONE
     Indication: PRODUCT USED FOR UNKNOWN INDICATION
     Dosage: 5 MG,QD
     Route: 065
     Dates: start: 20170801
  87. DIPROGENTA [Concomitant]
     Active Substance: BETAMETHASONE DIPROPIONATE\GENTAMICIN SULFATE
     Dosage: 1 DF, QD (CREAM)
     Route: 061
  88. DIPROGENTA [Concomitant]
     Active Substance: BETAMETHASONE DIPROPIONATE\GENTAMICIN SULFATE
     Dosage: 2 DF, 2X/DAY  (EVERY 12 HOURS)
     Route: 061

REACTIONS (5)
  - Oral candidiasis [Recovering/Resolving]
  - Off label use [Unknown]
  - Toxic epidermal necrolysis [Recovered/Resolved]
  - Product use issue [Unknown]
  - Fungal infection [Recovering/Resolving]

NARRATIVE: CASE EVENT DATE: 20170101
